FAERS Safety Report 18702195 (Version 1)
Quarter: 2021Q1

REPORT INFORMATION
  Report Type: Spontaneous
  Country: EG (occurrence: EG)
  Receive Date: 20210105
  Receipt Date: 20210105
  Transmission Date: 20210419
  Serious: Yes (Hospitalization, Other)
  Sender: FDA-Public Use
  Company Number: EG-MYLANLABS-2020M1107027

PATIENT
  Age: 6 Month
  Sex: Female
  Weight: 7.6 kg

DRUGS (2)
  1. ACICLOVIR MYLAN [Suspect]
     Active Substance: ACYCLOVIR
     Indication: MENINGITIS
     Dosage: 12AM AND FOLLOWING DOSE AT 8AM
     Dates: start: 20200907
  2. CALCIONATE [Concomitant]
     Active Substance: CALCIUM GLUBIONATE
     Indication: HYPOCALCAEMIA
     Dosage: 8ML +24ML GLUCOSE 5% ADMINISTERED OVER 2 HRS
     Dates: start: 20200907

REACTIONS (1)
  - Extravasation [Recovered/Resolved]

NARRATIVE: CASE EVENT DATE: 20200907
